FAERS Safety Report 5536561-9 (Version None)
Quarter: 2007Q4

REPORT INFORMATION
  Report Type: 
  Country: None (occurrence: None)
  Receive Date: 20071204
  Receipt Date: 20071119
  Transmission Date: 20080405
  Serious: Yes (Other)
  Sender: FDA-Public Use
  Company Number: 2007S1012139

PATIENT
  Age: 70 Year
  Sex: Male

DRUGS (1)
  1. FLUCONAZOLE [Suspect]
     Indication: FUNGAL INFECTION
     Dosage: 50 MG; 1; ORAL
     Route: 048
     Dates: start: 20071010, end: 20071012

REACTIONS (1)
  - SWELLING FACE [None]
